FAERS Safety Report 23581827 (Version 1)
Quarter: 2024Q1

REPORT INFORMATION
  Report Type: Spontaneous
  Country: US (occurrence: US)
  Receive Date: 20240229
  Receipt Date: 20240229
  Transmission Date: 20240410
  Serious: No
  Sender: FDA-Public Use
  Company Number: US-PRIMUS-2023-US-012725

PATIENT
  Age: 57 Year
  Sex: Female

DRUGS (2)
  1. SERNIVO [Suspect]
     Active Substance: BETAMETHASONE DIPROPIONATE
     Indication: Product used for unknown indication
     Dosage: SPRAY 1 SQUIRT ON THE SKIN TWICE A DAY; APPLY TO RIGHT FOREARM
     Route: 061
  2. TERBINAFINE [Concomitant]
     Active Substance: TERBINAFINE
     Route: 065

REACTIONS (3)
  - Application site rash [Unknown]
  - Application site pruritus [Unknown]
  - Application site pain [Unknown]
